FAERS Safety Report 10383644 (Version 1)
Quarter: 2014Q3

REPORT INFORMATION
  Report Type: Spontaneous
  Country: GB (occurrence: None)
  Receive Date: 20140811
  Receipt Date: 20140811
  Transmission Date: 20150326
  Serious: Yes (Other)
  Sender: FDA-Public Use
  Company Number: AUR-APL-2014-08461

PATIENT
  Age: 34 Year
  Sex: Male

DRUGS (3)
  1. RISPERIDONE (RISPERIDONE) [Concomitant]
     Active Substance: RISPERIDONE
  2. BISOPROLOL 2.5MG (BISOPROLOL) 2.5MG [Suspect]
     Active Substance: BISOPROLOL
     Indication: PROPHYLAXIS
     Dosage: 2.5MG, TWO TIMES A DAY
  3. CLOZAPINE (CLOZAPINE) [Concomitant]
     Active Substance: CLOZAPINE

REACTIONS (7)
  - Hypotension [None]
  - Refusal of treatment by patient [None]
  - Tachycardia [None]
  - Systolic dysfunction [None]
  - Palpitations [None]
  - Drug intolerance [None]
  - Dizziness [None]
